FAERS Safety Report 25904233 (Version 2)
Quarter: 2025Q4

REPORT INFORMATION
  Report Type: Report from Study
  Country: US (occurrence: US)
  Receive Date: 20251010
  Receipt Date: 20251112
  Transmission Date: 20260118
  Serious: Yes (Hospitalization, Other)
  Sender: SANOFI AVENTIS
  Company Number: US-SA-2025SA299646

PATIENT
  Age: 9 Year
  Sex: Male

DRUGS (1)
  1. AVALGLUCOSIDASE ALFA-NGPT [Suspect]
     Active Substance: AVALGLUCOSIDASE ALFA-NGPT
     Indication: Glycogen storage disease type II
     Dosage: 900 (UNITS UNSPECIFIED), QOW
     Route: 042
     Dates: start: 202410

REACTIONS (4)
  - Seizure [Recovering/Resolving]
  - Blood glucose increased [Recovering/Resolving]
  - Computerised tomogram abnormal [Not Recovered/Not Resolved]
  - Fibula fracture [Not Recovered/Not Resolved]

NARRATIVE: CASE EVENT DATE: 20250101
